FAERS Safety Report 8619932-3 (Version None)
Quarter: 2012Q3

REPORT INFORMATION
  Report Type: 
  Country: None (occurrence: None)
  Receive Date: 20120824
  Receipt Date: 20120821
  Transmission Date: 20120928
  Serious: Yes (Other)
  Sender: FDA-Public Use
  Company Number: JP-PFIZER INC-2012205041

PATIENT
  Age: 90 Year
  Sex: Female

DRUGS (17)
  1. ROCEPHIN [Concomitant]
     Dosage: 1 G, 2X/DAY
     Dates: start: 20120801, end: 20120807
  2. LASIX [Concomitant]
     Dosage: 20 MG, 1X/DAY
     Dates: start: 20120801, end: 20120807
  3. SOLDACTONE [Concomitant]
     Dosage: 1 AMPULE, 1X/DAY
     Dates: start: 20120801, end: 20120807
  4. LASIX [Concomitant]
     Dosage: 20 MG, 2X/DAY
     Dates: start: 20120808, end: 20120810
  5. PHYSIO [Concomitant]
     Dosage: 500 ML, 2X/DAY
     Dates: start: 20120801, end: 20120807
  6. PHYSIO [Concomitant]
     Dosage: 500 ML, 1X/DAY
     Dates: start: 20120808, end: 20120817
  7. THIOSPEN [Concomitant]
     Dosage: UNK
     Dates: start: 20120804, end: 20120807
  8. AMIGRAND [Concomitant]
     Dosage: 500 ML, 1X/DAY
     Dates: start: 20120804, end: 20120822
  9. HANP [Concomitant]
     Dosage: UNK
     Dates: start: 20120803, end: 20120807
  10. VITAMEDIN INTRAVENOUS [Concomitant]
     Dosage: UNK
     Dates: start: 20120801, end: 20120803
  11. ELASPOL [Concomitant]
     Dosage: 1.5 AMPULE, 1X/DAY
     Dates: start: 20120801, end: 20120807
  12. ZYVOX [Suspect]
     Dosage: 1200 MG, 1X/DAY
     Dates: start: 20120808, end: 20120815
  13. SOLDACTONE [Concomitant]
     Dosage: 1 AMPULE, 2X/DAY
     Dates: start: 20120808, end: 20120810
  14. INTRALIPID 10% [Concomitant]
     Dosage: 100 ML, 1X/DAY
     Dates: start: 20120801, end: 20120815
  15. SOLITA-T 3G [Concomitant]
     Dosage: 200 ML, 1X/DAY
     Dates: start: 20120804, end: 20120807
  16. LACTEC [Concomitant]
     Dosage: UNK
     Dates: start: 20120801, end: 20120803
  17. ASCORBIC ACID [Concomitant]
     Dosage: 500 MG, 1X/DAY
     Dates: start: 20120801, end: 20120803

REACTIONS (1)
  - HYPONATRAEMIA [None]
